FAERS Safety Report 24396750 (Version 1)
Quarter: 2024Q4

REPORT INFORMATION
  Report Type: Spontaneous
  Country: US (occurrence: None)
  Receive Date: 20241004
  Receipt Date: 20241004
  Transmission Date: 20250115
  Serious: Yes (Hospitalization)
  Sender: Public
  Company Number: None

PATIENT
  Sex: Male
  Weight: 90.26 kg

DRUGS (1)
  1. CISPLATIN [Suspect]
     Active Substance: CISPLATIN

REACTIONS (8)
  - Dehydration [None]
  - Oropharyngeal pain [None]
  - Decreased appetite [None]
  - Abdominal wall abscess [None]
  - Staphylococcal infection [None]
  - Gastrostomy tube site complication [None]
  - Medical device site cellulitis [None]
  - Dysphagia [None]

NARRATIVE: CASE EVENT DATE: 20240909
